FAERS Safety Report 6988261-6 (Version None)
Quarter: 2010Q3

REPORT INFORMATION
  Report Type: 
  Country: None (occurrence: None)
  Receive Date: 20100830
  Receipt Date: 20100726
  Transmission Date: 20110219
  Serious: Yes (Other)
  Sender: FDA-Public Use
  Company Number: 2010094162

PATIENT
  Age: 68 Year
  Sex: Female
  Weight: 77.1 kg

DRUGS (8)
  1. TOVIAZ [Suspect]
     Indication: HYPERTONIC BLADDER
     Dosage: 4 MG, 1X/DAY, ORAL, 8 MG, 1X/DAY
     Route: 048
     Dates: start: 20100627, end: 20100701
  2. TOVIAZ [Suspect]
     Indication: HYPERTONIC BLADDER
     Dosage: 4 MG, 1X/DAY, ORAL, 8 MG, 1X/DAY
     Route: 048
     Dates: start: 20100701
  3. METOPROLOL SUCCINATE [Concomitant]
  4. CRESTOR [Concomitant]
  5. ADVAIR DISKUS (FLUTICASONE PROPIONATE, SALMETEROL XINAFOATE) [Concomitant]
  6. ACIPHEX [Concomitant]
  7. AVALIDE [Concomitant]
  8. NASONEX [Concomitant]

REACTIONS (2)
  - CONSTIPATION [None]
  - VISION BLURRED [None]
